FAERS Safety Report 5887193-4 (Version None)
Quarter: 2008Q3

REPORT INFORMATION
  Report Type: 
  Country: None (occurrence: None)
  Receive Date: 20080917
  Receipt Date: 20080904
  Transmission Date: 20090109
  Serious: Yes (Hospitalization, Other)
  Sender: FDA-Public Use
  Company Number: JP-PFIZER INC-2008077193

PATIENT
  Age: 82 Year
  Sex: Female

DRUGS (6)
  1. MIGLITOL [Suspect]
     Indication: DIABETES MELLITUS
     Dosage: DAILY DOSE:150MG
     Route: 048
     Dates: start: 20080701, end: 20080826
  2. ASPIRIN [Suspect]
     Dosage: DAILY DOSE:100MG
     Route: 048
     Dates: end: 20080826
  3. NORVASC [Suspect]
     Dosage: DAILY DOSE:2.5MG
     Route: 048
     Dates: end: 20080826
  4. BLOPRESS [Suspect]
     Dosage: DAILY DOSE:4MG
     Route: 048
     Dates: end: 20080826
  5. SIMVASTATIN [Suspect]
     Dosage: DAILY DOSE:5MG
     Route: 048
     Dates: start: 20050501, end: 20080826
  6. TOLTERODINE TARTRATE [Suspect]
     Dosage: TEXT:1 DF (DOSAGE FORM)
     Route: 048
     Dates: start: 20051201, end: 20080826

REACTIONS (2)
  - INTESTINAL OBSTRUCTION [None]
  - PNEUMATOSIS INTESTINALIS [None]
